FAERS Safety Report 4881731-6 (Version None)
Quarter: 2006Q1

REPORT INFORMATION
  Report Type: 
  Country: None (occurrence: None)
  Receive Date: 20060116
  Receipt Date: 20060104
  Transmission Date: 20060701
  Serious: Yes (Hospitalization)
  Sender: FDA-Public Use
  Company Number: CA-ROCHE-430771

PATIENT
  Age: 58 Year
  Sex: Male

DRUGS (2)
  1. INTERFERON ALFA [Suspect]
     Route: 042
  2. HYDROXYUREA [Concomitant]
     Route: 065

REACTIONS (5)
  - FACTOR VIII INHIBITION [None]
  - HAEMATOMA [None]
  - RASH ERYTHEMATOUS [None]
  - RASH PAPULAR [None]
  - RASH PRURITIC [None]
